FAERS Safety Report 5354787-4 (Version None)
Quarter: 2007Q2

REPORT INFORMATION
  Report Type: 
  Country: None (occurrence: None)
  Receive Date: 20070611
  Receipt Date: 20070530
  Transmission Date: 20071010
  Serious: Yes (Other)
  Sender: FDA-Public Use
  Company Number: CHNY2007BR02119

PATIENT
  Age: 2 Year
  Sex: Male
  Weight: 15 kg

DRUGS (1)
  1. CLEMASTINE FUMARATE [Suspect]
     Indication: RASH PAPULAR

REACTIONS (7)
  - DISEASE PROGRESSION [None]
  - ERYTHEMA [None]
  - PRURITUS [None]
  - RASH PAPULAR [None]
  - WOUND [None]
  - WOUND COMPLICATION [None]
  - WOUND HAEMORRHAGE [None]
